FAERS Safety Report 23777621 (Version 1)
Quarter: 2024Q2

REPORT INFORMATION
  Report Type: Spontaneous
  Country: FR (occurrence: FR)
  Receive Date: 20240424
  Receipt Date: 20240424
  Transmission Date: 20240716
  Serious: Yes (Hospitalization)
  Sender: FDA-Public Use
  Company Number: None

PATIENT
  Age: 84 Year
  Sex: Male

DRUGS (1)
  1. RAMIPRIL [Suspect]
     Active Substance: RAMIPRIL
     Indication: Atrial fibrillation
     Dosage: 1 TOTAL
     Route: 048
     Dates: start: 20240317, end: 20240317

REACTIONS (2)
  - Hypotension [Recovered/Resolved]
  - Incorrect dose administered [Recovered/Resolved]

NARRATIVE: CASE EVENT DATE: 20240317
